FAERS Safety Report 18422316 (Version 9)
Quarter: 2021Q4

REPORT INFORMATION
  Report Type: Spontaneous
  Country: US (occurrence: US)
  Receive Date: 20201023
  Receipt Date: 20211027
  Transmission Date: 20220303
  Serious: Yes (Hospitalization, Other)
  Sender: FDA-Public Use
  Company Number: US-PFIZER INC-2020408868

PATIENT
  Age: 87 Year
  Sex: Female
  Weight: 46.72 kg

DRUGS (3)
  1. IBRANCE [Suspect]
     Active Substance: PALBOCICLIB
     Indication: Breast cancer metastatic
     Dosage: 100 MG, CYCLIC (100 MG DAILY BY MOUTH FOR 3 WEEKS AND THEN 1 WEEK OFF)
     Route: 048
     Dates: start: 202010
  2. FULVESTRANT [Concomitant]
     Active Substance: FULVESTRANT
     Indication: Breast cancer metastatic
     Dosage: UNK (GETS AN INJECTION IN HER BUTT/STARTED AT EVERY 2 WEEKS)
     Dates: start: 202009
  3. FULVESTRANT [Concomitant]
     Active Substance: FULVESTRANT
     Dosage: UNK, MONTHLY (NOW GETS A MONTHLY INJECTION AT THE DOCTOR^S OFFICE)

REACTIONS (29)
  - Red blood cell count decreased [Unknown]
  - Pneumonia [Unknown]
  - Fatigue [Unknown]
  - Cardiac failure congestive [Unknown]
  - Cardiomyopathy [Unknown]
  - Pericardial effusion [Unknown]
  - Internal haemorrhage [Unknown]
  - Bone cancer [Unknown]
  - Oxygen saturation decreased [Unknown]
  - Hypoacusis [Unknown]
  - Pruritus [Recovered/Resolved]
  - Chronic obstructive pulmonary disease [Unknown]
  - Alopecia [Unknown]
  - Weight decreased [Unknown]
  - Psychiatric symptom [Unknown]
  - Decreased appetite [Unknown]
  - Heart rate increased [Unknown]
  - Dyspnoea [Unknown]
  - Taste disorder [Unknown]
  - Diarrhoea [Unknown]
  - Constipation [Unknown]
  - Eating disorder [Unknown]
  - Gait disturbance [Unknown]
  - Depressed mood [Recovering/Resolving]
  - Feeling abnormal [Unknown]
  - Anaemia [Unknown]
  - Amnesia [Unknown]
  - Bone pain [Unknown]
  - Respiratory disorder [Unknown]

NARRATIVE: CASE EVENT DATE: 20201001
